FAERS Safety Report 13480748 (Version 2)
Quarter: 2017Q2

REPORT INFORMATION
  Report Type: Report from Study
  Country: GB (occurrence: GB)
  Receive Date: 20170425
  Receipt Date: 20170505
  Transmission Date: 20170830
  Serious: Yes (Death, Hospitalization)
  Sender: FDA-Public Use
  Company Number: GB-ACTELION-A-NJ2017-153042

PATIENT
  Sex: Female

DRUGS (10)
  1. SILDENAFIL. [Concomitant]
     Active Substance: SILDENAFIL
  2. BETAMETHASONE. [Concomitant]
     Active Substance: BETAMETHASONE
  3. AMIODARONE [Concomitant]
     Active Substance: AMIODARONE
  4. COCODAMOL [Concomitant]
     Active Substance: ACETAMINOPHEN\CODEINE PHOSPHATE
  5. TEMAZEPAM. [Concomitant]
     Active Substance: TEMAZEPAM
  6. AMBRISENTAN [Concomitant]
     Active Substance: AMBRISENTAN
  7. AZITHROMYCIN ANHYDROUS. [Concomitant]
     Active Substance: AZITHROMYCIN ANHYDROUS
  8. WARFARIN [Concomitant]
     Active Substance: WARFARIN
  9. VENTAVIS [Suspect]
     Active Substance: ILOPROST
     Indication: PULMONARY ARTERIAL HYPERTENSION
     Dosage: UNK
     Route: 055
     Dates: start: 20090414
  10. VENLAFAXINE [Concomitant]
     Active Substance: VENLAFAXINE HYDROCHLORIDE

REACTIONS (2)
  - Death [Fatal]
  - Transplant [Unknown]
